FAERS Safety Report 10501919 (Version 5)
Quarter: 2015Q1

REPORT INFORMATION
  Report Type: Spontaneous
  Country: JP (occurrence: JP)
  Receive Date: 20141007
  Receipt Date: 20150303
  Transmission Date: 20150720
  Serious: Yes (Life-Threatening, Hospitalization, Other)
  Sender: FDA-Public Use
  Company Number: JP-PFIZER INC-2014270510

PATIENT
  Age: 92 Year
  Sex: Female

DRUGS (13)
  1. TSUKUSHI AM [Concomitant]
     Dosage: 1 DF, 3X/DAY
     Route: 048
  2. MERISLON [Concomitant]
     Active Substance: BETAHISTINE MESILATE
     Dosage: 1 DF, 3X/DAY
     Route: 048
  3. TRIAZOLAM. [Concomitant]
     Active Substance: TRIAZOLAM
     Dosage: 0.25 MG, 1X/DAY
     Route: 048
  4. ECARD HD [Concomitant]
     Active Substance: CANDESARTAN CILEXETIL\HYDROCHLOROTHIAZIDE
     Dosage: 1 DF, 1X/DAY
     Route: 048
  5. VESICARE [Concomitant]
     Active Substance: SOLIFENACIN SUCCINATE
     Dosage: 5 MG, 1X/DAY
     Route: 048
  6. HORIZON [Concomitant]
     Active Substance: DIAZEPAM
     Dosage: 2 MG, 3X/DAY
     Route: 048
  7. SG GRANULE [Concomitant]
     Active Substance: ACETAMINOPHEN\APRONALIDE\CAFFEINE\PROPYPHENAZONE
     Dosage: 1 DF, AS NEEDED
     Route: 048
  8. HALCION [Suspect]
     Active Substance: TRIAZOLAM
     Dosage: 4.5 MG, SINGLE
     Route: 048
     Dates: start: 20140930, end: 20140930
  9. TALION [Concomitant]
     Active Substance: BEPOTASTINE
     Dosage: 10 MG, 2X/DAY
     Route: 048
  10. HALCION [Suspect]
     Active Substance: TRIAZOLAM
     Indication: INSOMNIA
     Dosage: UNK
     Route: 048
  11. AMLODIPINE [Concomitant]
     Active Substance: AMLODIPINE BESYLATE
     Dosage: 5 MG, 1X/DAY
     Route: 048
  12. FUROSEMIDE. [Concomitant]
     Active Substance: FUROSEMIDE
     Dosage: 10 MG, 1X/DAY
     Route: 048
  13. FLUITRAN [Concomitant]
     Active Substance: TRICHLORMETHIAZIDE
     Dosage: 2 MG, 1X/DAY
     Route: 048

REACTIONS (3)
  - Respiratory depression [Recovered/Resolved]
  - Overdose [Recovered/Resolved]
  - Sense of oppression [Recovered/Resolved]

NARRATIVE: CASE EVENT DATE: 20140930
